FAERS Safety Report 20189749 (Version 14)
Quarter: 2025Q1

REPORT INFORMATION
  Report Type: Spontaneous
  Country: US (occurrence: US)
  Receive Date: 20211215
  Receipt Date: 20250131
  Transmission Date: 20250409
  Serious: Yes (Hospitalization, Other)
  Sender: PFIZER
  Company Number: US-PFIZER INC-202101707424

PATIENT
  Age: 54 Year
  Sex: Female

DRUGS (5)
  1. IBRANCE [Suspect]
     Active Substance: PALBOCICLIB
     Dates: start: 20211115
  2. IBRANCE [Suspect]
     Active Substance: PALBOCICLIB
     Dates: start: 20211124
  3. IBRANCE [Suspect]
     Active Substance: PALBOCICLIB
     Dates: start: 20211130
  4. IBRANCE [Suspect]
     Active Substance: PALBOCICLIB
     Dates: start: 20211201
  5. IBRANCE [Suspect]
     Active Substance: PALBOCICLIB

REACTIONS (16)
  - Helicobacter gastritis [Unknown]
  - Sinusitis [Unknown]
  - Limb operation [Unknown]
  - Coronary artery disease [Unknown]
  - Fatigue [Recovered/Resolved]
  - Nausea [Recovered/Resolved]
  - Decreased appetite [Recovered/Resolved]
  - Nasopharyngitis [Unknown]
  - Diarrhoea [Unknown]
  - Blood glucose increased [Recovering/Resolving]
  - Headache [Recovering/Resolving]
  - Blood glucose fluctuation [Recovering/Resolving]
  - Vomiting [Recovered/Resolved]
  - Gastrointestinal disorder [Unknown]
  - Burning sensation [Unknown]
  - Product dose omission issue [Unknown]

NARRATIVE: CASE EVENT DATE: 20211201
